FAERS Safety Report 6100077-1 (Version None)
Quarter: 2009Q1

REPORT INFORMATION
  Report Type: 
  Country: None (occurrence: None)
  Receive Date: 20090303
  Receipt Date: 20090225
  Transmission Date: 20090719
  Serious: Yes (Other)
  Sender: FDA-Public Use
  Company Number: B0562189A

PATIENT
  Age: 34 Year
  Sex: Male

DRUGS (1)
  1. COMBIVIR [Suspect]
     Route: 065

REACTIONS (2)
  - ANAEMIA [None]
  - PALLOR [None]
